FAERS Safety Report 24995191 (Version 2)
Quarter: 2025Q2

REPORT INFORMATION
  Report Type: Spontaneous
  Country: CN (occurrence: CN)
  Receive Date: 20250221
  Receipt Date: 20250403
  Transmission Date: 20250717
  Serious: Yes (Other)
  Sender: PFIZER
  Company Number: CN-PFIZER INC-PV202300127697

PATIENT
  Age: 38 Year
  Sex: Male

DRUGS (5)
  1. XYNTHA [Suspect]
     Active Substance: MOROCTOCOG ALFA
     Dates: start: 20220914
  2. XYNTHA [Suspect]
     Active Substance: MOROCTOCOG ALFA
     Route: 041
     Dates: start: 20230612
  3. XYNTHA [Suspect]
     Active Substance: MOROCTOCOG ALFA
     Dosage: 1500 IU, ALTERNATE DAY
     Route: 042
     Dates: start: 20230828
  4. XYNTHA [Suspect]
     Active Substance: MOROCTOCOG ALFA
     Dosage: 1000 IU, 1X/DAY
     Route: 042
     Dates: start: 20240111
  5. XYNTHA [Suspect]
     Active Substance: MOROCTOCOG ALFA
     Dosage: 2000 IU, ALTERNATE DAY
     Route: 042
     Dates: start: 20240830

REACTIONS (2)
  - Anti factor VIII antibody increased [Unknown]
  - Off label use [Unknown]

NARRATIVE: CASE EVENT DATE: 20230612
